FAERS Safety Report 7783596-1 (Version None)
Quarter: 2011Q3

REPORT INFORMATION
  Report Type: 
  Country: None (occurrence: None)
  Receive Date: 20110928
  Receipt Date: 20110920
  Transmission Date: 20111222
  Serious: Yes (Other)
  Sender: FDA-Public Use
  Company Number: DE-TEVA-301599GER

PATIENT
  Sex: Female
  Weight: 65 kg

DRUGS (1)
  1. BISOPROLOL-CT 5 MG TABLETTEN [Suspect]
     Indication: HYPERTENSION
     Route: 048

REACTIONS (3)
  - CARDIOVASCULAR INSUFFICIENCY [None]
  - HYPERTENSION [None]
  - MALAISE [None]
